FAERS Safety Report 4315976-0 (Version None)
Quarter: 2004Q1

REPORT INFORMATION
  Report Type: 
  Country: None (occurrence: None)
  Receive Date: 20040310
  Receipt Date: 20040225
  Transmission Date: 20041129
  Serious: Yes (Life-Threatening, Hospitalization)
  Sender: FDA-Public Use
  Company Number: 2003013329

PATIENT
  Age: 59 Year
  Sex: Male
  Weight: 85 kg

DRUGS (9)
  1. VIAGRA [Suspect]
     Indication: ERECTILE DYSFUNCTION
     Dosage: 100 MG (PRN), ORAL
     Route: 048
  2. ALL OTHER THERAPEUTIC PRODUCTS [Concomitant]
  3. ACETYLSALICYLIC ACID (ACETHLSALICYLIC ACID) [Concomitant]
  4. SIMVASTATIN [Concomitant]
  5. ATENOLOL [Concomitant]
  6. AMLODIPINE [Concomitant]
  7. NITROGLYCERIN [Concomitant]
  8. SALBUTAMOL (SALBUTAMOL) [Concomitant]
  9. BECLOMETHASONE DIPROPIONATE [Concomitant]

REACTIONS (4)
  - AORTIC DISSECTION [None]
  - CHEST PAIN [None]
  - CIRCULATORY COLLAPSE [None]
  - PULSE ABSENT [None]
